FAERS Safety Report 11890083 (Version 1)
Quarter: 2016Q1

REPORT INFORMATION
  Report Type: Spontaneous
  Country: FR (occurrence: FR)
  Receive Date: 20160105
  Receipt Date: 20160105
  Transmission Date: 20160526
  Serious: Yes (Hospitalization)
  Sender: FDA-Public Use
  Company Number: FR-INCYTE CORPORATION-2015IN006962

PATIENT
  Age: 78 Year
  Sex: Female

DRUGS (9)
  1. KARDEGIC [Suspect]
     Active Substance: ASPIRIN LYSINE
     Indication: EMBOLISM
     Dosage: 75 MG, IN AFTERNOON
     Route: 065
  2. LASILIX [Concomitant]
     Active Substance: FUROSEMIDE
     Indication: PRODUCT USED FOR UNKNOWN INDICATION
     Dosage: 125 MG, IN MORNING
     Route: 065
  3. JAKAFI [Suspect]
     Active Substance: RUXOLITINIB
     Indication: MYELOFIBROSIS
     Dosage: 10 MG, QD
     Route: 048
  4. INEXIUM//ESOMEPRAZOLE MAGNESIUM [Concomitant]
     Active Substance: ESOMEPRAZOLE MAGNESIUM
     Indication: PRODUCT USED FOR UNKNOWN INDICATION
     Dosage: 40 MG, IN THE EVENING
     Route: 065
  5. DOLIPRANE [Concomitant]
     Active Substance: ACETAMINOPHEN
     Indication: PAIN
     Dosage: 1 G, Q8H
     Route: 065
  6. ZYMAD [Concomitant]
     Active Substance: CHOLECALCIFEROL
     Indication: PRODUCT USED FOR UNKNOWN INDICATION
     Dosage: 1 DF, (1 AMPOULE EVERY 15 DAYS FOR 2 MONTHS)
     Route: 065
  7. TRANSIPEG//MACROGOL [Concomitant]
     Indication: PRODUCT USED FOR UNKNOWN INDICATION
     Dosage: 2 DF, IN MORNING
     Route: 065
  8. DIFFU-K [Concomitant]
     Active Substance: POTASSIUM CHLORIDE
     Indication: PRODUCT USED FOR UNKNOWN INDICATION
     Dosage: 2 DF, QD (IN MORNING AND EVENING)
     Route: 065
  9. CONTRAMAL [Concomitant]
     Active Substance: TRAMADOL HYDROCHLORIDE
     Indication: PAIN
     Dosage: 50 MG, EVERY 6 HOUR
     Route: 065

REACTIONS (2)
  - Epistaxis [Recovered/Resolved]
  - Epistaxis [Recovered/Resolved]

NARRATIVE: CASE EVENT DATE: 20151217
